FAERS Safety Report 10716440 (Version 1)
Quarter: 2015Q1

REPORT INFORMATION
  Report Type: Spontaneous
  Country: US (occurrence: None)
  Receive Date: 20150115
  Receipt Date: 20150115
  Transmission Date: 20150721
  Serious: No
  Sender: FDA-Public Use
  Company Number: None

PATIENT
  Sex: Male
  Weight: 73.9 kg

DRUGS (3)
  1. RITUXIMAB [Suspect]
     Active Substance: RITUXIMAB
     Dates: end: 20150101
  2. VELCADE [Suspect]
     Active Substance: BORTEZOMIB
     Dates: end: 20150108
  3. BENDAMUSTINE HYDROCHLORIDE [Suspect]
     Active Substance: BENDAMUSTINE HYDROCHLORIDE
     Dates: end: 20150102

REACTIONS (3)
  - Tachycardia [None]
  - Deep vein thrombosis [None]
  - Pulmonary embolism [None]
